FAERS Safety Report 15241074 (Version 1)
Quarter: 2018Q3

REPORT INFORMATION
  Report Type: Spontaneous
  Country: US (occurrence: US)
  Receive Date: 20180711
  Receipt Date: 20180711
  Transmission Date: 20181010
  Serious: No
  Sender: FDA-Public Use
  Company Number: None

PATIENT
  Age: 64 Year
  Sex: Female

DRUGS (1)
  1. ORENCIA [Suspect]
     Active Substance: ABATACEPT
     Dates: start: 20180711, end: 20180711

REACTIONS (3)
  - Product storage error [None]
  - Product quality issue [None]
  - Drug dose omission [None]

NARRATIVE: CASE EVENT DATE: 20180711
